APPROVED DRUG PRODUCT: INVELTYS
Active Ingredient: LOTEPREDNOL ETABONATE
Strength: 1%
Dosage Form/Route: SUSPENSION/DROPS;OPHTHALMIC
Application: N210565 | Product #001
Applicant: ALCON LABORATORIES INC
Approved: Aug 22, 2018 | RLD: Yes | RS: Yes | Type: RX

PATENTS:
Patent 9056057 | Expires: May 3, 2033
Patent 9532955 | Expires: May 3, 2033
Patent 10058511 | Expires: May 3, 2033
Patent 11219597 | Expires: May 3, 2033
Patent 11219597 | Expires: May 3, 2033
Patent 10864219 | Expires: May 3, 2033
Patent 9737491 | Expires: May 3, 2033
Patent 9827191 | Expires: May 3, 2033
Patent 12115246 | Expires: May 3, 2033
Patent 10688045 | Expires: May 3, 2033
Patent 11642317 | Expires: May 3, 2033
Patent 10646437 | Expires: May 3, 2033
Patent 9393213 | Expires: May 3, 2033
Patent 11872318 | Expires: May 3, 2033